FAERS Safety Report 14362205 (Version 1)
Quarter: 2018Q1

REPORT INFORMATION
  Report Type: Spontaneous
  Country: US (occurrence: US)
  Receive Date: 20180108
  Receipt Date: 20180108
  Transmission Date: 20180509
  Serious: Yes (Other)
  Sender: FDA-Public Use
  Company Number: US-ABBVIE-18K-163-2211009-00

PATIENT
  Sex: Female

DRUGS (1)
  1. HUMIRA [Suspect]
     Active Substance: ADALIMUMAB
     Indication: ANKYLOSING SPONDYLITIS
     Route: 058

REACTIONS (7)
  - Drug hypersensitivity [Unknown]
  - Hypertension [Unknown]
  - Drug ineffective [Unknown]
  - Migraine [Unknown]
  - Loss of consciousness [Unknown]
  - Autoimmune disorder [Unknown]
  - Heart rate increased [Unknown]
